FAERS Safety Report 13250704 (Version 2)
Quarter: 2017Q1

REPORT INFORMATION
  Report Type: Report from Study
  Country: CN (occurrence: CN)
  Receive Date: 20170220
  Receipt Date: 20170303
  Transmission Date: 20170428
  Serious: Yes (Hospitalization, Other)
  Sender: FDA-Public Use
  Company Number: CN-ROCHE-1895636

PATIENT
  Sex: Female
  Weight: 53 kg

DRUGS (1)
  1. AVASTIN [Suspect]
     Active Substance: BEVACIZUMAB
     Indication: RECTAL CANCER
     Route: 041
     Dates: start: 20160803, end: 20170104

REACTIONS (4)
  - Supraventricular tachycardia [Unknown]
  - Tachycardia [Unknown]
  - Epistaxis [Unknown]
  - Thrombosis [Unknown]
